FAERS Safety Report 7559962-6 (Version None)
Quarter: 2011Q2

REPORT INFORMATION
  Report Type: 
  Country: None (occurrence: None)
  Receive Date: 20110621
  Receipt Date: 20110610
  Transmission Date: 20111010
  Serious: Yes (Hospitalization)
  Sender: FDA-Public Use
  Company Number: PHHY2011US19978

PATIENT
  Sex: Male

DRUGS (1)
  1. GILENYA [Suspect]
     Indication: MULTIPLE SCLEROSIS
     Dosage: 0.5 MG, QD
     Route: 048
     Dates: start: 20110209

REACTIONS (6)
  - NAUSEA [None]
  - OESOPHAGITIS [None]
  - GALLBLADDER DISORDER [None]
  - DECREASED APPETITE [None]
  - VOMITING [None]
  - VISION BLURRED [None]
